FAERS Safety Report 4692238-3 (Version None)
Quarter: 2005Q2

REPORT INFORMATION
  Report Type: 
  Country: None (occurrence: None)
  Receive Date: 20050614
  Receipt Date: 20050602
  Transmission Date: 20051028
  Serious: Yes (Other)
  Sender: FDA-Public Use
  Company Number: ES-2005-003912

PATIENT
  Sex: Female

DRUGS (1)
  1. MIRENA [Suspect]
     Dosage: 20 UG, CONT, INTRA-UTERINE
     Route: 015
     Dates: start: 20030301

REACTIONS (4)
  - HEPATIC ADENOMA [None]
  - HEPATIC NEOPLASM MALIGNANT [None]
  - HYPERPLASIA [None]
  - LIVER DISORDER [None]
